FAERS Safety Report 4275152-7 (Version None)
Quarter: 2004Q1

REPORT INFORMATION
  Report Type: 
  Country: None (occurrence: None)
  Receive Date: 20040116
  Receipt Date: 20040108
  Transmission Date: 20041129
  Serious: Yes (Hospitalization)
  Sender: FDA-Public Use
  Company Number: 2004CG00049

PATIENT
  Age: 73 Year
  Sex: Male

DRUGS (1)
  1. ARIMIDEX [Suspect]
     Indication: BREAST CANCER MALE
     Dates: start: 20031201, end: 20040101

REACTIONS (5)
  - ASTHENIA [None]
  - BLOOD LACTATE DEHYDROGENASE INCREASED [None]
  - C-REACTIVE PROTEIN INCREASED [None]
  - CARDIAC FAILURE [None]
  - GAMMA-GLUTAMYLTRANSFERASE INCREASED [None]
